FAERS Safety Report 5586997-5 (Version None)
Quarter: 2008Q1

REPORT INFORMATION
  Report Type: 
  Country: None (occurrence: None)
  Receive Date: 20080110
  Receipt Date: 20080102
  Transmission Date: 20080703
  Serious: Yes (Other)
  Sender: FDA-Public Use
  Company Number: A0688063A

PATIENT
  Age: 58 Year
  Sex: Female
  Weight: 71.8 kg

DRUGS (3)
  1. FLONASE [Suspect]
     Indication: SEASONAL ALLERGY
     Dosage: 2SPR TWICE PER DAY
     Route: 045
     Dates: start: 20061101, end: 20070113
  2. FLOVENT [Concomitant]
     Indication: ASTHMA
     Dosage: 2PUFF PER DAY
     Route: 055
     Dates: start: 20061101
  3. ESTROGEL [Concomitant]
     Indication: MENOPAUSE
     Dates: start: 20021001, end: 20070701

REACTIONS (5)
  - DRUG HYPERSENSITIVITY [None]
  - FATIGUE [None]
  - HEADACHE [None]
  - NAUSEA [None]
  - WEIGHT DECREASED [None]
